FAERS Safety Report 11106998 (Version 5)
Quarter: 2015Q4

REPORT INFORMATION
  Report Type: Spontaneous
  Country: US (occurrence: US)
  Receive Date: 20150512
  Receipt Date: 20151028
  Transmission Date: 20160304
  Serious: Yes (Hospitalization, Disabling, Other)
  Sender: FDA-Public Use
  Company Number: US-009507513-1203USA01852

PATIENT
  Sex: Female
  Weight: 82.86 kg

DRUGS (7)
  1. FOSAMAX [Suspect]
     Active Substance: ALENDRONATE SODIUM
     Indication: OSTEOPOROSIS
     Dosage: UNK,
     Route: 048
     Dates: start: 2000, end: 2008
  2. FOSAMAX [Suspect]
     Active Substance: ALENDRONATE SODIUM
     Indication: OSTEOPENIA
     Dosage: UNK, QW
     Route: 048
  3. PREDNISONE. [Concomitant]
     Active Substance: PREDNISONE
     Indication: PRODUCT USED FOR UNKNOWN INDICATION
     Dosage: UNK
     Route: 065
     Dates: start: 2000, end: 2009
  4. FOSAMAX PLUS D [Suspect]
     Active Substance: ALENDRONATE SODIUM\CHOLECALCIFEROL
     Indication: OSTEOPOROSIS
     Dosage: 70 MG, QW
     Route: 048
     Dates: start: 20060903, end: 20081016
  5. ALENDRONATE SODIUM. [Suspect]
     Active Substance: ALENDRONATE SODIUM
     Indication: OSTEOPENIA
     Dosage: 10 MG, UNK
     Route: 048
     Dates: start: 200308, end: 200509
  6. CALCIUM D (CALCIUM CARBONATE (+) CHOLECALCIFEROL) [Concomitant]
     Indication: PRODUCT USED FOR UNKNOWN INDICATION
     Dosage: 600 MG, BID
     Route: 065
     Dates: start: 1968
  7. FOSAMAX [Suspect]
     Active Substance: ALENDRONATE SODIUM
     Dosage: 10 MG, QD
     Route: 048
     Dates: start: 20000213, end: 20050918

REACTIONS (39)
  - Skin cancer [Unknown]
  - Femur fracture [Unknown]
  - Arthropathy [Unknown]
  - Meniscus injury [Unknown]
  - Transient ischaemic attack [Unknown]
  - Osteopenia [Unknown]
  - Colitis [Unknown]
  - Osteoarthritis [Unknown]
  - Joint arthroplasty [Unknown]
  - Chondromalacia [Unknown]
  - Joint dislocation [Unknown]
  - Arthroscopy [Unknown]
  - Meniscus removal [Unknown]
  - Adverse event [Unknown]
  - Carpal tunnel decompression [Unknown]
  - Intramedullary rod insertion [Unknown]
  - Femur fracture [Unknown]
  - Stress fracture [Not Recovered/Not Resolved]
  - Fibromyalgia [Unknown]
  - Asthma [Unknown]
  - Bunion operation [Unknown]
  - Skin cancer [Unknown]
  - Low turnover osteopathy [Not Recovered/Not Resolved]
  - Fall [Unknown]
  - Knee operation [Unknown]
  - Meniscus injury [Unknown]
  - Rheumatoid arthritis [Unknown]
  - Hypercholesterolaemia [Unknown]
  - Osteoarthritis [Unknown]
  - Osteoarthritis [Unknown]
  - Oedema peripheral [Unknown]
  - Osteoporosis [Not Recovered/Not Resolved]
  - Hypertension [Unknown]
  - Joint effusion [Unknown]
  - Atrial fibrillation [Unknown]
  - Cataract operation [Unknown]
  - Bursitis [Unknown]
  - Sjogren^s syndrome [Unknown]
  - Fracture delayed union [Unknown]

NARRATIVE: CASE EVENT DATE: 2000
